FAERS Safety Report 16460441 (Version 1)
Quarter: 2019Q2

REPORT INFORMATION
  Report Type: Report from Study
  Country: None (occurrence: AU)
  Receive Date: 20190620
  Receipt Date: 20190620
  Transmission Date: 20190711
  Serious: Yes (Other)
  Sender: FDA-Public Use
  Company Number: AU-BAUSCH-BL-2019-017618

PATIENT
  Age: 15 Year
  Sex: Female

DRUGS (3)
  1. PIMECROLIMUS. [Concomitant]
     Active Substance: PIMECROLIMUS
     Indication: DERMATITIS CONTACT
     Dosage: PERIORBITAL AREA
     Route: 061
  2. HYDROCORTISONE. [Suspect]
     Active Substance: HYDROCORTISONE
     Indication: DERMATITIS CONTACT
     Route: 061
  3. METHYLPREDNISOLONE. [Suspect]
     Active Substance: METHYLPREDNISOLONE
     Indication: DERMATITIS CONTACT
     Dosage: USING LESS THAN 15 G IN TOTAL, REGULARLY OVER A 4 MONTHS PERIOD
     Route: 061

REACTIONS (1)
  - Steroid withdrawal syndrome [Recovered/Resolved]
